FAERS Safety Report 7881264-9 (Version None)
Quarter: 2011Q4

REPORT INFORMATION
  Report Type: 
  Country: None (occurrence: None)
  Receive Date: 20111101
  Receipt Date: 20110608
  Transmission Date: 20120403
  Serious: No
  Sender: FDA-Public Use
  Company Number: US-AMGEN-USASP2011029748

PATIENT
  Sex: Female

DRUGS (2)
  1. ENBREL [Suspect]
     Indication: RHEUMATOID ARTHRITIS
     Dosage: 50 MG, QWK
     Dates: start: 20040901
  2. HUMIRA [Concomitant]

REACTIONS (5)
  - JOINT SWELLING [None]
  - COUGH [None]
  - UPPER RESPIRATORY TRACT CONGESTION [None]
  - ARTHRALGIA [None]
  - DRUG INEFFECTIVE [None]
